FAERS Safety Report 4534027-6 (Version None)
Quarter: 2004Q4

REPORT INFORMATION
  Report Type: 
  Country: None (occurrence: None)
  Receive Date: 20041220
  Receipt Date: 20041220
  Transmission Date: 20050328
  Serious: Yes (Life-Threatening, Hospitalization)
  Sender: FDA-Public Use
  Company Number: None

PATIENT
  Age: 50 Year
  Sex: Female
  Weight: 90.7194 kg

DRUGS (1)
  1. PRAVACHOL [Suspect]
     Dosage: 1 PER DAY
     Dates: start: 20010802, end: 20010813

REACTIONS (11)
  - AMNESIA [None]
  - ASTHENIA [None]
  - CHILLS [None]
  - INFLUENZA LIKE ILLNESS [None]
  - LIVER DISORDER [None]
  - MUSCLE DISORDER [None]
  - NERVOUSNESS [None]
  - PAIN [None]
  - PYREXIA [None]
  - RENAL DISORDER [None]
  - TREMOR [None]
